FAERS Safety Report 13257723 (Version 3)
Quarter: 2017Q1

REPORT INFORMATION
  Report Type: Report from Study
  Country: US (occurrence: US)
  Receive Date: 20170221
  Receipt Date: 20170321
  Transmission Date: 20170428
  Serious: Yes (Other)
  Sender: FDA-Public Use
  Company Number: US-GILEAD-2017-0258309

PATIENT
  Age: 67 Year
  Sex: Female

DRUGS (1)
  1. IDELALISIB [Suspect]
     Active Substance: IDELALISIB
     Indication: CHRONIC LYMPHOCYTIC LEUKAEMIA
     Dosage: 100 MG, UNK
     Route: 048

REACTIONS (6)
  - Laceration [Unknown]
  - Infection [Unknown]
  - Nasopharyngitis [Unknown]
  - Gastroenteritis viral [Unknown]
  - Skin cancer [Unknown]
  - Diarrhoea [Unknown]
